FAERS Safety Report 12526834 (Version 1)
Quarter: 2016Q3

REPORT INFORMATION
  Report Type: Spontaneous
  Country: US (occurrence: None)
  Receive Date: 20160705
  Receipt Date: 20160705
  Transmission Date: 20161109
  Serious: Yes (Life-Threatening)
  Sender: FDA-Public Use
  Company Number: None

PATIENT
  Age: 59 Year
  Sex: Male
  Weight: 77.6 kg

DRUGS (9)
  1. LANTUS [Concomitant]
     Active Substance: INSULIN GLARGINE
  2. ASPIRIN. [Concomitant]
     Active Substance: ASPIRIN
  3. NEUTRAPHOS [Concomitant]
  4. BANANA BAG [Concomitant]
  5. NICOTINE. [Concomitant]
     Active Substance: NICOTINE
  6. PANTOPRAZOLE [Concomitant]
     Active Substance: PANTOPRAZOLE SODIUM
  7. NICARDIPINE [Concomitant]
     Active Substance: NICARDIPINE
  8. ALBUMIN (HUMAN) NOS [Suspect]
     Active Substance: ALBUMIN HUMAN
     Indication: GENERALISED OEDEMA
     Route: 041
     Dates: start: 20160630, end: 20160630
  9. VANCOMYCIN [Concomitant]
     Active Substance: VANCOMYCIN

REACTIONS (5)
  - Angioedema [None]
  - No reaction on previous exposure to drug [None]
  - Urticaria [None]
  - Rash erythematous [None]
  - Dyspnoea [None]

NARRATIVE: CASE EVENT DATE: 20160630
